FAERS Safety Report 8912481 (Version 1)
Quarter: 2012Q4

REPORT INFORMATION
  Report Type: 
  Country: US (occurrence: US)
  Receive Date: 20121115
  Receipt Date: 20121115
  Transmission Date: 20130627
  Serious: No
  Sender: FDA-Public Use
  Company Number: US-B.I. PHARMACEUTICALS,INC./RIDGEFIELD-2012-BP-27496BP

PATIENT
  Sex: Female
  Weight: 64 kg

DRUGS (6)
  1. SPIRIVA [Suspect]
     Indication: ASTHMA
     Dosage: 18 mcg
     Route: 055
     Dates: start: 2010
  2. WARFARIN [Concomitant]
     Route: 048
  3. OMEPRAZOLE [Concomitant]
     Route: 048
  4. CELEXA [Concomitant]
     Route: 048
  5. DIGOXIN [Concomitant]
     Route: 048
  6. DILTIAZEM [Concomitant]
     Route: 048

REACTIONS (6)
  - Hip fracture [Recovered/Resolved with Sequelae]
  - Loss of consciousness [Recovered/Resolved]
  - Cellulitis [Not Recovered/Not Resolved]
  - Abdominal discomfort [Not Recovered/Not Resolved]
  - Fall [Recovered/Resolved with Sequelae]
  - Product quality issue [Recovered/Resolved]
